FAERS Safety Report 18643694 (Version 1)
Quarter: 2020Q4

REPORT INFORMATION
  Report Type: Spontaneous
  Country: US (occurrence: US)
  Receive Date: 20201221
  Receipt Date: 20201221
  Transmission Date: 20210114
  Serious: No
  Sender: FDA-Public Use
  Company Number: US-PFIZER INC-2020498727

PATIENT
  Age: 43 Year
  Sex: Male
  Weight: 108.86 kg

DRUGS (2)
  1. DEPO-MEDROL [Suspect]
     Active Substance: METHYLPREDNISOLONE ACETATE
     Dosage: UNK (UNSURE OF DOSE, ADMINISTERED CAUDAL INJECTION, FOR HIS COCCYX AREA EVERY 4-6 MONTHS)
     Dates: start: 2014
  2. OXYCODONE [Concomitant]
     Active Substance: OXYCODONE
     Indication: COCCYDYNIA
     Dosage: 325 MG EVERY 4 HOURS, ALSO REPORTED AS TOOK 4 TOTAL A DAY
     Route: 048
     Dates: start: 2014

REACTIONS (4)
  - Fall [Unknown]
  - Spinal column injury [Unknown]
  - Buttock injury [Unknown]
  - Drug ineffective [Not Recovered/Not Resolved]

NARRATIVE: CASE EVENT DATE: 20201120
